FAERS Safety Report 7442834-5 (Version None)
Quarter: 2011Q2

REPORT INFORMATION
  Report Type: 
  Country: None (occurrence: None)
  Receive Date: 20110419
  Receipt Date: 20110404
  Transmission Date: 20111010
  Serious: Yes (Other)
  Sender: FDA-Public Use
  Company Number: LMI-2011-00313

PATIENT
  Age: 50 Year
  Sex: Female

DRUGS (9)
  1. LORTAB [Concomitant]
  2. ATENOLOL [Concomitant]
  3. LEXISCAN [Suspect]
     Indication: SCAN MYOCARDIAL PERFUSION
     Dosage: INTRAVENOUS (NOT OTHERWISE SPECIFIED)
     Route: 042
     Dates: start: 20110307, end: 20110307
  4. COUMADIN [Concomitant]
  5. PREVACID [Concomitant]
  6. SEVELLA (MILNACIPRAN) [Concomitant]
  7. CARDIOLITE [Suspect]
     Indication: PRODUCT USED FOR UNKNOWN INDICATION
     Dosage: REGIMEN#1,
  8. VITAMIN D [Concomitant]
  9. KLONOPIN [Concomitant]

REACTIONS (4)
  - SWELLING FACE [None]
  - HEADACHE [None]
  - EYE SWELLING [None]
  - NAUSEA [None]
